FAERS Safety Report 5460133-8 (Version None)
Quarter: 2007Q3

REPORT INFORMATION
  Report Type: 
  Country: None (occurrence: None)
  Receive Date: 20070919
  Receipt Date: 20070912
  Transmission Date: 20080115
  Serious: Yes (Hospitalization)
  Sender: FDA-Public Use
  Company Number: BE-ASTRAZENECA-2007AC01730

PATIENT
  Sex: Male

DRUGS (2)
  1. CASODEX [Suspect]
     Indication: PROSTATE CANCER
     Route: 048
  2. ZOLADEX [Concomitant]
     Indication: PROSTATE CANCER
     Route: 058

REACTIONS (4)
  - ERYTHEMA [None]
  - OEDEMA [None]
  - PAIN [None]
  - VASCULITIS [None]
